FAERS Safety Report 5727383-4 (Version None)
Quarter: 2008Q2

REPORT INFORMATION
  Report Type: 
  Country: None (occurrence: None)
  Receive Date: 20080501
  Receipt Date: 20070423
  Transmission Date: 20081010
  Serious: Yes (Disabling)
  Sender: FDA-Public Use
  Company Number: PHEH2007US03241

PATIENT
  Sex: Female

DRUGS (1)
  1. LOTREL [Suspect]
     Indication: HYPERTENSION
     Dosage: 5/40 MG, ORAL ; 10/40 MG, ORAL
     Route: 048
     Dates: start: 20070201, end: 20070301

REACTIONS (1)
  - OEDEMA PERIPHERAL [None]
